FAERS Safety Report 9388118 (Version 2)
Quarter: 2013Q3

REPORT INFORMATION
  Report Type: Spontaneous
  Country: CA (occurrence: CA)
  Receive Date: 20130708
  Receipt Date: 20130802
  Transmission Date: 20140515
  Serious: Yes (Other)
  Sender: FDA-Public Use
  Company Number: CA-GLAXOSMITHKLINE-A1028880A

PATIENT
  Age: 50 Year
  Sex: Female
  Weight: 57 kg

DRUGS (2)
  1. TYKERB [Suspect]
     Indication: BREAST CANCER METASTATIC
     Dosage: 1250MG UNKNOWN
     Route: 065
     Dates: start: 20130528, end: 20130626
  2. CAPECITABINE [Concomitant]
     Route: 065
     Dates: start: 20130528

REACTIONS (2)
  - Breast cancer metastatic [Unknown]
  - Diarrhoea [Recovered/Resolved]
